FAERS Safety Report 7247093-4 (Version None)
Quarter: 2011Q1

REPORT INFORMATION
  Report Type: 
  Country: None (occurrence: None)
  Receive Date: 20110127
  Receipt Date: 20100405
  Transmission Date: 20110831
  Serious: No
  Sender: FDA-Public Use
  Company Number: US-BAUSCH-2010BL001881

PATIENT
  Age: 71 Year
  Sex: Male

DRUGS (2)
  1. ALAWAY [Suspect]
     Indication: SEASONAL ALLERGY
     Route: 047
     Dates: start: 20100401, end: 20100404
  2. ZYRTEC [Concomitant]
     Indication: SEASONAL ALLERGY
     Route: 048

REACTIONS (3)
  - LACRIMATION INCREASED [None]
  - EYE PRURITUS [None]
  - CONDITION AGGRAVATED [None]
